FAERS Safety Report 5514007-4 (Version None)
Quarter: 2007Q4

REPORT INFORMATION
  Report Type: 
  Country: None (occurrence: None)
  Receive Date: 20071113
  Receipt Date: 20071105
  Transmission Date: 20080405
  Serious: Yes (Hospitalization)
  Sender: FDA-Public Use
  Company Number: US-BAYER-200714235BWH

PATIENT
  Age: 59 Year
  Sex: Female
  Weight: 88 kg

DRUGS (25)
  1. SORAFENIB (STUDY MED NOT GIVEN) [Suspect]
     Indication: OVARIAN CANCER
  2. CARBOPLATIN [Suspect]
     Indication: OVARIAN CANCER
     Route: 042
     Dates: start: 20070913
  3. CARBOPLATIN [Suspect]
     Route: 042
     Dates: start: 20070524, end: 20070809
  4. TAXOL [Suspect]
     Indication: OVARIAN CANCER
     Route: 042
     Dates: start: 20070913
  5. TAXOL [Suspect]
     Route: 042
     Dates: start: 20070524, end: 20070809
  6. EFFEXOR XR [Concomitant]
     Indication: DEPRESSION
  7. GLUCOPHAGE [Concomitant]
     Indication: DIABETES MELLITUS
  8. ACTONEL [Concomitant]
     Indication: OSTEOPOROSIS
  9. ACTONEL [Concomitant]
  10. SINGULAIR [Concomitant]
     Indication: ASTHMA
     Dosage: TOTAL DAILY DOSE: 10 MG
  11. TRAZODONE HCL [Concomitant]
     Indication: INSOMNIA
  12. LASIX [Concomitant]
     Indication: OEDEMA
     Dosage: TOTAL DAILY DOSE: 20 MG
  13. SYNTHROID [Concomitant]
     Indication: HYPOTHYROIDISM
     Dosage: TOTAL DAILY DOSE: 175 ?G
  14. VYTORIN [Concomitant]
     Indication: HYPERLIPIDAEMIA
     Dosage: AS USED: 10/20 MG
  15. ZOFRAN [Concomitant]
  16. COMPAZINE [Concomitant]
  17. VALIUM [Concomitant]
     Indication: ANXIETY
  18. COMBIVENT [Concomitant]
     Indication: ASTHMA
  19. NORVASC [Concomitant]
     Indication: HYPERTENSION
     Dosage: TOTAL DAILY DOSE: 10 MG
  20. ADVAIR DISKUS 100/50 [Concomitant]
     Indication: ASTHMA
  21. VICODIN [Concomitant]
     Indication: PAIN
  22. POTASSIUM CHLORIDE [Concomitant]
     Dosage: TOTAL DAILY DOSE: 10 MEQ
  23. DESYREL [Concomitant]
     Indication: SLEEP DISORDER
     Dosage: TOTAL DAILY DOSE: 100 MG
  24. AMBIEN [Concomitant]
     Indication: SLEEP DISORDER
     Dosage: TOTAL DAILY DOSE: 5 MG
  25. FLUZONE [Concomitant]
     Indication: INFLUENZA IMMUNISATION
     Dates: start: 20071014, end: 20071014

REACTIONS (7)
  - ANAEMIA [None]
  - ASTHENIA [None]
  - ELECTROLYTE IMBALANCE [None]
  - FAILURE TO THRIVE [None]
  - HYPOTENSION [None]
  - PANCYTOPENIA [None]
  - THROMBOCYTOPENIA [None]
